FAERS Safety Report 4719085-8 (Version None)
Quarter: 2005Q3

REPORT INFORMATION
  Report Type: 
  Country: None (occurrence: None)
  Receive Date: 20050719
  Receipt Date: 20050701
  Transmission Date: 20060218
  Serious: Yes (Hospitalization, Other)
  Sender: FDA-Public Use
  Company Number: EWC050744802

PATIENT
  Age: 86 Year
  Sex: Male
  Weight: 71 kg

DRUGS (5)
  1. FLUOXETINE [Suspect]
     Indication: DEPRESSION
     Dosage: 20 MG DAY
     Dates: start: 20050401, end: 20050421
  2. NORVASC [Concomitant]
  3. PRADIF (TAMSULOSIN HYDROCHLORIDE) [Concomitant]
  4. OXAZEPAM [Concomitant]
  5. CITALOPRAM [Concomitant]

REACTIONS (10)
  - ANOREXIA [None]
  - APATHY [None]
  - ASTHENIA [None]
  - BLOOD OSMOLARITY DECREASED [None]
  - GENERAL PHYSICAL HEALTH DETERIORATION [None]
  - HYPONATRAEMIA [None]
  - INAPPROPRIATE ANTIDIURETIC HORMONE SECRETION [None]
  - MUSCULAR WEAKNESS [None]
  - SLEEP DISORDER [None]
  - URINE OSMOLARITY INCREASED [None]
